FAERS Safety Report 20583534 (Version 1)
Quarter: 2022Q1

REPORT INFORMATION
  Report Type: Report from Study
  Country: US (occurrence: US)
  Receive Date: 20220311
  Receipt Date: 20220311
  Transmission Date: 20220423
  Serious: Yes (Hospitalization, Other)
  Sender: FDA-Public Use
  Company Number: US-AMGEN-USASL2022039092

PATIENT
  Sex: Male

DRUGS (7)
  1. KYPROLIS [Suspect]
     Active Substance: CARFILZOMIB
     Indication: Plasma cell myeloma
     Dosage: 42 MILLIGRAM
     Route: 065
     Dates: start: 20220111, end: 20220112
  2. KYPROLIS [Suspect]
     Active Substance: CARFILZOMIB
     Dosage: 118 MILLIGRAM
     Route: 065
     Dates: start: 20220118, end: 20220125
  3. KYPROLIS [Suspect]
     Active Substance: CARFILZOMIB
     Dosage: 118 MILLIGRAM, QWK
     Route: 065
     Dates: start: 20220208
  4. KYPROLIS [Suspect]
     Active Substance: CARFILZOMIB
     Dosage: 118 MILLIGRAM, QWK (60MG)
     Route: 065
     Dates: start: 20220215
  5. KYPROLIS [Suspect]
     Active Substance: CARFILZOMIB
     Dosage: 118 MILLIGRAM (30MG)
     Route: 065
     Dates: start: 20220215
  6. KYPROLIS [Suspect]
     Active Substance: CARFILZOMIB
     Dosage: 118 MILLIGRAM (10MG)
     Route: 065
     Dates: start: 20220215, end: 20220215
  7. DARATUMUMAB [Concomitant]
     Active Substance: DARATUMUMAB
     Indication: Plasma cell myeloma
     Dosage: UNK
     Route: 058

REACTIONS (6)
  - Retinal haemorrhage [Unknown]
  - Blindness unilateral [Unknown]
  - Adverse event [Unknown]
  - Tremor [Unknown]
  - Unevaluable event [Unknown]
  - Asthenia [Unknown]

NARRATIVE: CASE EVENT DATE: 20220101
